FAERS Safety Report 9163928 (Version 2)
Quarter: 2013Q2

REPORT INFORMATION
  Report Type: Spontaneous
  Country: US (occurrence: US)
  Receive Date: 20130314
  Receipt Date: 20130605
  Transmission Date: 20140414
  Serious: No
  Sender: FDA-Public Use
  Company Number: US-009507513-1303USA004652

PATIENT
  Age: 30 Year
  Sex: Female

DRUGS (11)
  1. NEXPLANON [Suspect]
     Indication: CONTRACEPTION
     Dosage: 1 DF, UNK
     Route: 059
     Dates: start: 20120620, end: 20130307
  2. NEXPLANON [Suspect]
     Dosage: 1 DF, UNK
     Route: 059
     Dates: start: 20130307
  3. MOTRIN [Concomitant]
  4. PRILOSEC [Concomitant]
  5. CLARITIN [Concomitant]
  6. CHANTIX [Concomitant]
  7. VICODIN [Concomitant]
  8. PERCOCET [Concomitant]
  9. DEPAKOTE [Concomitant]
  10. ALBUTEROL [Concomitant]
  11. MELATONIN [Concomitant]

REACTIONS (6)
  - Menopausal symptoms [Recovered/Resolved]
  - Device kink [Unknown]
  - Libido decreased [Recovered/Resolved]
  - Metrorrhagia [Recovered/Resolved]
  - Dysmenorrhoea [Recovered/Resolved]
  - Product quality issue [Unknown]
